FAERS Safety Report 6606501-X (Version None)
Quarter: 2010Q1

REPORT INFORMATION
  Report Type: 
  Country: None (occurrence: None)
  Receive Date: 20100226
  Receipt Date: 20100216
  Transmission Date: 20100710
  Serious: Yes (Hospitalization)
  Sender: FDA-Public Use
  Company Number: PHHY2009GB54019

PATIENT
  Sex: Male

DRUGS (2)
  1. CLOZARIL [Suspect]
     Indication: SCHIZOPHRENIA
     Dosage: UNK
     Dates: start: 19990705
  2. CLOZARIL [Suspect]
     Dosage: 550 MG/DAY
     Dates: end: 20091204

REACTIONS (2)
  - TOOTH EXTRACTION [None]
  - TOOTH INFECTION [None]
